FAERS Safety Report 13264307 (Version 1)
Quarter: 2017Q1

REPORT INFORMATION
  Report Type: Spontaneous
  Country: US (occurrence: US)
  Receive Date: 20170222
  Receipt Date: 20170222
  Transmission Date: 20170428
  Serious: Yes (Other)
  Sender: FDA-Public Use
  Company Number: None

PATIENT
  Age: 69 Year
  Sex: Female

DRUGS (1)
  1. CAPECITABINE 500MG GENENTECH [Suspect]
     Active Substance: CAPECITABINE
     Indication: BREAST CANCER FEMALE
     Dosage: 1800MG TAKE 3 500MG AND TWO 150MG (TOTAL DOSE 1800MG) BY MOUTH
     Route: 048
     Dates: start: 20161201, end: 20170220

REACTIONS (4)
  - Noninfective gingivitis [None]
  - Skin fissures [None]
  - Dry skin [None]
  - Skin discolouration [None]

NARRATIVE: CASE EVENT DATE: 20170115
